FAERS Safety Report 25593540 (Version 1)
Quarter: 2025Q3

REPORT INFORMATION
  Report Type: Spontaneous
  Country: US (occurrence: US)
  Receive Date: 20250722
  Receipt Date: 20250722
  Transmission Date: 20251020
  Serious: No
  Sender: ELI LILLY AND COMPANY
  Company Number: US-ELI_LILLY_AND_COMPANY-US202507009465

PATIENT
  Age: 85 Year
  Sex: Male

DRUGS (1)
  1. EBGLYSS [Suspect]
     Active Substance: LEBRIKIZUMAB-LBKZ
     Indication: Dermatitis atopic
     Route: 065
     Dates: start: 20250609

REACTIONS (6)
  - Diarrhoea [Recovered/Resolved]
  - Vomiting [Recovered/Resolved]
  - Dehydration [Unknown]
  - Viral infection [Unknown]
  - Influenza [Unknown]
  - Conjunctivitis [Unknown]
